FAERS Safety Report 23845964 (Version 1)
Quarter: 2024Q2

REPORT INFORMATION
  Report Type: Spontaneous
  Country: US (occurrence: US)
  Receive Date: 20240512
  Receipt Date: 20240512
  Transmission Date: 20240716
  Serious: No
  Sender: FDA-Public Use
  Company Number: US-CIPLA LTD.-2023US05869

PATIENT

DRUGS (3)
  1. ALBUTEROL [Suspect]
     Active Substance: ALBUTEROL
     Indication: Product used for unknown indication
     Dosage: UNK (90 MCG), BID (TWICE A DAY) (FIRST INHALER)
     Dates: start: 2023
  2. ALBUTEROL [Suspect]
     Active Substance: ALBUTEROL
     Dosage: UNK (90 MCG), BID (TWICE A DAY) (SECOND INHALER)
     Dates: start: 2023
  3. ALBUTEROL [Suspect]
     Active Substance: ALBUTEROL
     Dosage: UNK (90 MCG), BID (TWICE A DAY) (THIRD INHALER)
     Dates: start: 2023

REACTIONS (4)
  - Drug dose omission by device [Unknown]
  - Device delivery system issue [Unknown]
  - Product quality issue [Unknown]
  - Product after taste [Unknown]

NARRATIVE: CASE EVENT DATE: 20230101
